FAERS Safety Report 10919289 (Version 2)
Quarter: 2015Q2

REPORT INFORMATION
  Report Type: Other
  Country: US (occurrence: US)
  Receive Date: 20150316
  Receipt Date: 20150429
  Transmission Date: 20150821
  Serious: No
  Sender: FDA-Public Use
  Company Number: US-ACORDA-ACO_109603_2015

PATIENT
  Age: 50 Year
  Sex: Female
  Weight: 68.93 kg

DRUGS (5)
  1. DIMETHYL FUMARATE [Concomitant]
     Active Substance: DIMETHYL FUMARATE
     Indication: PRODUCT USED FOR UNKNOWN INDICATION
  2. AMPYRA [Suspect]
     Active Substance: DALFAMPRIDINE
     Indication: GAIT DISTURBANCE
     Dosage: 10 MG, BID
     Route: 065
     Dates: start: 20130130
  3. EFFEXOR [Concomitant]
     Active Substance: VENLAFAXINE HYDROCHLORIDE
     Indication: PRODUCT USED FOR UNKNOWN INDICATION
  4. BACLOFEN. [Concomitant]
     Active Substance: BACLOFEN
     Indication: PRODUCT USED FOR UNKNOWN INDICATION
  5. XANAX [Concomitant]
     Active Substance: ALPRAZOLAM
     Indication: PRODUCT USED FOR UNKNOWN INDICATION
     Dosage: UNK
     Dates: start: 20150219

REACTIONS (5)
  - Muscular weakness [Recovering/Resolving]
  - Acute stress disorder [Recovering/Resolving]
  - Panic reaction [Recovering/Resolving]
  - Depression [Recovering/Resolving]
  - Stress [Recovering/Resolving]

NARRATIVE: CASE EVENT DATE: 20150219
